FAERS Safety Report 10172007 (Version 2)
Quarter: 2015Q2

REPORT INFORMATION
  Report Type: Spontaneous
  Country: US (occurrence: US)
  Receive Date: 20140515
  Receipt Date: 20150622
  Transmission Date: 20150821
  Serious: No
  Sender: FDA-Public Use
  Company Number: US-TAKEDA-2014TUS003792

PATIENT
  Age: 63 Year
  Sex: Female

DRUGS (1)
  1. KAZANO [Suspect]
     Active Substance: ALOGLIPTIN BENZOATE\METFORMIN HYDROCHLORIDE
     Indication: TYPE 2 DIABETES MELLITUS
     Dosage: 12.5/500 MG; BID
     Route: 048

REACTIONS (2)
  - Malaise [Recovered/Resolved]
  - Liver function test abnormal [Recovered/Resolved]
